FAERS Safety Report 11847772 (Version 1)
Quarter: 2015Q4

REPORT INFORMATION
  Report Type: Spontaneous
  Country: FR (occurrence: FR)
  Receive Date: 20151217
  Receipt Date: 20151217
  Transmission Date: 20160305
  Serious: Yes (Hospitalization)
  Sender: FDA-Public Use
  Company Number: FR-GILEAD-2015-0188680

PATIENT
  Age: 62 Year
  Sex: Male

DRUGS (6)
  1. COVERSYL                           /00790702/ [Concomitant]
     Active Substance: PERINDOPRIL
  2. ZYDELIG [Suspect]
     Active Substance: IDELALISIB
     Indication: NON-HODGKIN^S LYMPHOMA
     Dosage: UNK
     Route: 048
     Dates: start: 201503, end: 20151111
  3. NEURONTIN [Concomitant]
     Active Substance: GABAPENTIN
     Dosage: UNK
  4. TEMERIT [Concomitant]
     Active Substance: NEBIVOLOL
     Dosage: UNK
  5. LASILIX                            /00032601/ [Concomitant]
     Active Substance: FUROSEMIDE
  6. DIFFU K [Concomitant]
     Active Substance: POTASSIUM CHLORIDE

REACTIONS (3)
  - Diarrhoea [Recovering/Resolving]
  - Eating disorder [Recovering/Resolving]
  - Dehydration [Recovering/Resolving]

NARRATIVE: CASE EVENT DATE: 201511
